FAERS Safety Report 9486316 (Version 1)
Quarter: 2013Q3

REPORT INFORMATION
  Report Type: Spontaneous
  Country: US (occurrence: None)
  Receive Date: 20130827
  Receipt Date: 20130827
  Transmission Date: 20140515
  Serious: Yes (Other)
  Sender: FDA-Public Use
  Company Number: None

PATIENT
  Age: 11 Year
  Sex: 0
  Weight: 55.34 kg

DRUGS (4)
  1. ABILIFY 2MG [Suspect]
     Dosage: 1 ONCE DAILY TAKEN BY MOUTH
     Route: 048
  2. FOCALIN XR [Concomitant]
  3. SERTRALINE [Concomitant]
  4. MULTI-VITAMIN [Concomitant]

REACTIONS (3)
  - Chest pain [None]
  - Neck pain [None]
  - Yawning [None]
